FAERS Safety Report 8012146-X (Version None)
Quarter: 2011Q4

REPORT INFORMATION
  Report Type: 
  Country: None (occurrence: None)
  Receive Date: 20111228
  Receipt Date: 20111222
  Transmission Date: 20120403
  Serious: Yes (Other)
  Sender: FDA-Public Use
  Company Number: FR-JNJFOC-20111211319

PATIENT
  Age: 44 Year
  Sex: Male

DRUGS (1)
  1. ACETAMINOPHEN AND TRAMADOL HCL [Suspect]
     Indication: PRODUCT USED FOR UNKNOWN INDICATION
     Route: 048

REACTIONS (6)
  - ANXIETY [None]
  - PALPITATIONS [None]
  - ABDOMINAL PAIN [None]
  - DIZZINESS [None]
  - BRADYPNOEA [None]
  - NAUSEA [None]
